FAERS Safety Report 6098014-1 (Version None)
Quarter: 2009Q1

REPORT INFORMATION
  Report Type: 
  Country: None (occurrence: None)
  Receive Date: 20090227
  Receipt Date: 20090216
  Transmission Date: 20090719
  Serious: Yes (Hospitalization)
  Sender: FDA-Public Use
  Company Number: US-BAXTER-2009BH002665

PATIENT
  Age: 74 Year
  Sex: Male

DRUGS (3)
  1. DIANEAL [Suspect]
     Indication: PERITONEAL DIALYSIS
     Route: 033
     Dates: start: 20071120
  2. DIANEAL [Suspect]
     Indication: PERITONEAL DIALYSIS
     Route: 033
     Dates: start: 20071120
  3. COUMADIN [Concomitant]
     Indication: HEART VALVE REPLACEMENT
     Route: 065

REACTIONS (2)
  - GASTROINTESTINAL HAEMORRHAGE [None]
  - ULCER [None]
